FAERS Safety Report 5918167-2 (Version None)
Quarter: 2008Q4

REPORT INFORMATION
  Report Type: 
  Country: None (occurrence: None)
  Receive Date: 20081014
  Receipt Date: 20081006
  Transmission Date: 20090506
  Serious: No
  Sender: FDA-Public Use
  Company Number: US-B.I. PHARMACEUTICALS,INC./RIDGEFIELD-2008-BP-11473BP

PATIENT

DRUGS (1)
  1. COMBIVENT [Suspect]
     Route: 055
     Dates: start: 20060801

REACTIONS (1)
  - DYSGEUSIA [None]
